FAERS Safety Report 5099413-7 (Version None)
Quarter: 2006Q3

REPORT INFORMATION
  Report Type: 
  Country: None (occurrence: None)
  Receive Date: 20060908
  Receipt Date: 20060825
  Transmission Date: 20061208
  Serious: Yes (Other)
  Sender: FDA-Public Use
  Company Number: PHEH2006US10940

PATIENT
  Age: 68 Year
  Sex: Male
  Weight: 68.027 kg

DRUGS (21)
  1. AREDIA [Suspect]
     Dosage: 90MG Q3MOS
     Dates: start: 20020614, end: 20021217
  2. AREDIA [Suspect]
     Dosage: 30 MG, ONCE/SINGLE
     Dates: start: 20030320, end: 20030320
  3. AREDIA [Suspect]
     Dosage: 90 MG, QMO
     Dates: start: 20030727, end: 20040428
  4. AREDIA [Suspect]
     Dosage: 90 MG, Q2MO
     Dates: start: 20040614, end: 20051109
  5. AREDIA [Suspect]
     Dosage: 90MG Q3-4MOS
     Dates: start: 20060215
  6. AVASTIN [Concomitant]
     Dosage: 700MG Q3WKS
     Route: 042
  7. ANTIHYPERTENSIVE DRUGS [Concomitant]
  8. THALIDOMIDE [Suspect]
     Dates: start: 20020601
  9. TAXOTERE [Concomitant]
  10. CARBOPLATIN [Concomitant]
  11. GEMZAR [Concomitant]
  12. KETOCONAZOLE [Concomitant]
  13. CYTOXAN [Concomitant]
  14. INTRON A [Concomitant]
  15. PROSCAR [Concomitant]
  16. COUMADIN [Concomitant]
  17. TESTOSTERONE [Concomitant]
  18. LIPITOR [Concomitant]
     Dosage: 40 MG, QD
  19. NEXIUM [Concomitant]
  20. DECADRON #1 [Concomitant]
     Indication: PREMEDICATION
     Dosage: 4 MG, UNK
     Route: 042
     Dates: start: 20020614
  21. HYDROCORTISONE [Concomitant]
     Dates: start: 20030513, end: 20040217

REACTIONS (15)
  - AORTIC ARTERIOSCLEROSIS [None]
  - BONE DISORDER [None]
  - DIVERTICULUM [None]
  - GINGIVAL BLEEDING [None]
  - GINGIVITIS [None]
  - HYPOAESTHESIA [None]
  - LOOSE TOOTH [None]
  - NEUROPATHY PERIPHERAL [None]
  - ORAL INFECTION [None]
  - ORAL INTAKE REDUCED [None]
  - OSTEONECROSIS [None]
  - PAIN IN JAW [None]
  - RENAL CYST [None]
  - SPINAL OSTEOARTHRITIS [None]
  - TRISMUS [None]
